FAERS Safety Report 26179488 (Version 1)
Quarter: 2025Q4

REPORT INFORMATION
  Report Type: Spontaneous
  Country: AU (occurrence: AU)
  Receive Date: 20251219
  Receipt Date: 20251219
  Transmission Date: 20260117
  Serious: Yes (Other)
  Sender: B. BRAUN MEDICAL INC.
  Company Number: AU-B. Braun Medical Inc.-AU-BBM-202504816

PATIENT
  Age: 27 Year
  Sex: Female

DRUGS (1)
  1. DEXTROSE [Suspect]
     Active Substance: DEXTROSE MONOHYDRATE
     Indication: Hypoglycaemia
     Dosage: 50 ML BOLUSESOF 50% DEXTROSE FOR HYPOGLYCAEMIA

REACTIONS (1)
  - Liver injury [Unknown]
